FAERS Safety Report 18414258 (Version 3)
Quarter: 2021Q1

REPORT INFORMATION
  Report Type: Report from Study
  Country: None (occurrence: US)
  Receive Date: 20201022
  Receipt Date: 20210106
  Transmission Date: 20210419
  Serious: No
  Sender: FDA-Public Use
  Company Number: US-ABBVIE-20K-163-3618704-00

PATIENT
  Sex: Female

DRUGS (3)
  1. HUMIRA [Suspect]
     Active Substance: ADALIMUMAB
     Indication: PSORIASIS
     Dosage: DAY 1
     Route: 058
     Dates: start: 20201015, end: 20201015
  2. HUMIRA [Suspect]
     Active Substance: ADALIMUMAB
     Dosage: DAY 8
     Route: 058
     Dates: start: 20201022, end: 2020
  3. HUMIRA [Suspect]
     Active Substance: ADALIMUMAB
     Route: 058
     Dates: start: 2020

REACTIONS (16)
  - General physical condition abnormal [Recovered/Resolved]
  - Cough [Unknown]
  - Skin fissures [Recovering/Resolving]
  - Impaired quality of life [Recovered/Resolved]
  - Anger [Recovered/Resolved]
  - Pruritus [Recovered/Resolved]
  - Self-consciousness [Unknown]
  - Gait disturbance [Unknown]
  - Skin irritation [Recovered/Resolved]
  - Frustration tolerance decreased [Recovered/Resolved]
  - Emotional distress [Recovered/Resolved]
  - Pain of skin [Recovered/Resolved]
  - Therapeutic product effect incomplete [Unknown]
  - Helplessness [Recovered/Resolved]
  - Pain in extremity [Unknown]
  - Psoriasis [Recovering/Resolving]

NARRATIVE: CASE EVENT DATE: 2020
